FAERS Safety Report 9276616 (Version 1)
Quarter: 2012Q4

REPORT INFORMATION
  Report Type: Spontaneous
  Country: US (occurrence: None)
  Receive Date: 20121109
  Receipt Date: 20121109
  Transmission Date: 20130627
  Serious: Yes (Death, Other)
  Sender: FDA-Public Use
  Company Number: 2012S1000640

PATIENT
  Age: 75 Year
  Sex: Male

DRUGS (10)
  1. CUBICIN [Suspect]
     Route: 042
  2. CASPOFUNGIN [Suspect]
     Indication: CANDIDA KRUSEI INFECTION
  3. POSACONAZOLE [Suspect]
     Indication: CANDIDA KRUSEI INFECTION
  4. MEROPENEM [Suspect]
  5. FLUDARABINE [Concomitant]
  6. CYTARABINE [Concomitant]
  7. FLUCONAZOLE [Concomitant]
  8. VALTREX [Concomitant]
  9. LEVOFLOXACIN [Concomitant]
  10. VORICONAZOLE [Concomitant]

REACTIONS (4)
  - Septic shock [None]
  - Bacterial infection [None]
  - Bronchopneumonia [None]
  - Candida test positive [None]
